FAERS Safety Report 4606994-3 (Version None)
Quarter: 2005Q1

REPORT INFORMATION
  Report Type: 
  Country: None (occurrence: None)
  Receive Date: 20050310
  Receipt Date: 20050225
  Transmission Date: 20050727
  Serious: Yes (Other)
  Sender: FDA-Public Use
  Company Number: 2005039401

PATIENT
  Age: 51 Year
  Sex: Female
  Weight: 52.1637 kg

DRUGS (8)
  1. CELEBREX [Suspect]
     Indication: PAIN
     Dosage: 200 MG (200 MG, 1 IN 1 D), ORAL
     Route: 048
     Dates: start: 20040101
  2. TOPAMAX [Suspect]
     Indication: FIBROMYALGIA
     Dates: end: 20050101
  3. HYDROCHLOROTHIAZIDE [Concomitant]
  4. LISINOPRIL [Concomitant]
  5. OMEPRAZOLE [Concomitant]
  6. CYCLOBENZAPRINE HYDROCHLORIDE [Concomitant]
  7. NARATRIPTAN HYDROCHLORIDE (NARATRIPTAN HYDROCHLORIDE) [Concomitant]
  8. CETIRIZINE HCL [Concomitant]

REACTIONS (4)
  - DRUG EFFECT DECREASED [None]
  - OEDEMA [None]
  - RETINAL TEAR [None]
  - VISUAL DISTURBANCE [None]
